FAERS Safety Report 24358675 (Version 1)
Quarter: 2024Q3

REPORT INFORMATION
  Report Type: Report from Study
  Country: GR (occurrence: GR)
  Receive Date: 20240924
  Receipt Date: 20240924
  Transmission Date: 20241017
  Serious: Yes (Death, Life-Threatening, Hospitalization, Disabling, Other)
  Sender: ABBVIE
  Company Number: GR-ABBVIE-5935195

PATIENT
  Age: 80 Year
  Sex: Male
  Weight: 81 kg

DRUGS (10)
  1. VENETOCLAX [Suspect]
     Active Substance: VENETOCLAX
     Indication: Acute myeloid leukaemia
     Route: 048
     Dates: start: 20230119, end: 20230210
  2. CEFTRIAXONE [Concomitant]
     Active Substance: CEFTRIAXONE\CEFTRIAXONE SODIUM
     Indication: Febrile neutropenia
     Route: 042
     Dates: start: 20221103, end: 20221110
  3. TAMSULOSIN [Concomitant]
     Active Substance: TAMSULOSIN
     Indication: Benign prostatic hyperplasia
     Dosage: UNIT DOSE: 0.4 MICROGRAM
     Route: 048
     Dates: start: 201201
  4. LINEZOLID [Concomitant]
     Active Substance: LINEZOLID
     Indication: Febrile neutropenia
     Route: 042
     Dates: start: 20230314, end: 20230324
  5. VALACYCLOVIR [Concomitant]
     Active Substance: VALACYCLOVIR HYDROCHLORIDE
     Indication: Antiviral prophylaxis
     Route: 048
     Dates: start: 20221101
  6. AVIBACTAM SODIUM\CEFTAZIDIME [Concomitant]
     Active Substance: AVIBACTAM SODIUM\CEFTAZIDIME
     Indication: Febrile neutropenia
     Dosage: TIME INTERVAL: 0.33333333 DAYS: UNIT DOSE: 2.5MG
     Route: 042
     Dates: start: 20230215, end: 20230227
  7. COLISTIN [Concomitant]
     Active Substance: COLISTIN
     Indication: Febrile neutropenia
     Route: 042
     Dates: start: 20230225, end: 20230314
  8. LEVOTHYROXINE [Concomitant]
     Active Substance: LEVOTHYROXINE\LEVOTHYROXINE SODIUM
     Indication: Hypothyroidism
     Dosage: (T4)
     Route: 048
     Dates: start: 201201
  9. ALLOPURINOL [Concomitant]
     Active Substance: ALLOPURINOL
     Indication: Hyperuricaemia
     Route: 048
     Dates: start: 20221101
  10. OLMESARTANMEDOXOMIL/AMLODIPINE ACCORD [Concomitant]
     Indication: Hypertension
     Route: 048
     Dates: start: 2009

REACTIONS (3)
  - Disease progression [Fatal]
  - Hyperleukocytosis [Unknown]
  - Sepsis [Fatal]

NARRATIVE: CASE EVENT DATE: 20230306
